FAERS Safety Report 9024251 (Version 2)
Quarter: 2013Q2

REPORT INFORMATION
  Report Type: Spontaneous
  Country: US (occurrence: US)
  Receive Date: 20130121
  Receipt Date: 20130409
  Transmission Date: 20140414
  Serious: Yes (Other)
  Sender: FDA-Public Use
  Company Number: US-JNJFOC-20130106676

PATIENT
  Age: 45 Year
  Sex: Male
  Weight: 62.14 kg

DRUGS (4)
  1. LEVAQUIN [Suspect]
     Indication: DIARRHOEA
     Dosage: ON DAY 2
     Route: 048
     Dates: start: 20110321
  2. LEVAQUIN [Suspect]
     Indication: DIARRHOEA
     Dosage: FOR 2 DOSES; ON DAY 1
     Route: 048
     Dates: start: 20110320
  3. LEVAQUIN [Suspect]
     Indication: PYREXIA
     Dosage: ON DAY 2
     Route: 048
     Dates: start: 20110321
  4. LEVAQUIN [Suspect]
     Indication: PYREXIA
     Dosage: FOR 2 DOSES; ON DAY 1
     Route: 048
     Dates: start: 20110320

REACTIONS (1)
  - Erectile dysfunction [Unknown]
